FAERS Safety Report 9016684 (Version 1)
Quarter: 2013Q1

REPORT INFORMATION
  Report Type: Spontaneous
  Country: CA (occurrence: CA)
  Receive Date: 20130116
  Receipt Date: 20130116
  Transmission Date: 20140127
  Serious: Yes (Life-Threatening, Other)
  Sender: FDA-Public Use
  Company Number: CA-ABBOTT-13P-028-1036612-00

PATIENT
  Age: 39 Year
  Sex: Male
  Weight: 77.18 kg

DRUGS (14)
  1. NORVIR [Suspect]
     Indication: PRODUCT USED FOR UNKNOWN INDICATION
     Route: 048
  2. ANTI-NAUSEANT [Interacting]
     Indication: PRODUCT USED FOR UNKNOWN INDICATION
  3. DIMENHYDRINATE [Interacting]
     Indication: PRODUCT USED FOR UNKNOWN INDICATION
  4. ADVAIR [Concomitant]
     Indication: PRODUCT USED FOR UNKNOWN INDICATION
  5. ATRIPLA [Concomitant]
     Indication: PRODUCT USED FOR UNKNOWN INDICATION
  6. CLONAZEPAM [Concomitant]
     Indication: PRODUCT USED FOR UNKNOWN INDICATION
  7. PAXIL [Concomitant]
     Indication: PRODUCT USED FOR UNKNOWN INDICATION
  8. PREVACID [Concomitant]
     Indication: PRODUCT USED FOR UNKNOWN INDICATION
  9. PREZISTA [Concomitant]
     Indication: PRODUCT USED FOR UNKNOWN INDICATION
  10. RATIO-CLONAZEPAM [Concomitant]
     Indication: PRODUCT USED FOR UNKNOWN INDICATION
  11. RATIO-PAROXETINE [Concomitant]
     Indication: PRODUCT USED FOR UNKNOWN INDICATION
  12. RIVOTRIL [Concomitant]
     Indication: PRODUCT USED FOR UNKNOWN INDICATION
  13. SYNTHROID [Concomitant]
     Indication: PRODUCT USED FOR UNKNOWN INDICATION
  14. TRUVADA [Concomitant]
     Indication: PRODUCT USED FOR UNKNOWN INDICATION

REACTIONS (13)
  - Condition aggravated [Not Recovered/Not Resolved]
  - Anxiety [Not Recovered/Not Resolved]
  - Contusion [Not Recovered/Not Resolved]
  - Pituitary-dependent Cushing^s syndrome [Not Recovered/Not Resolved]
  - Depression [Not Recovered/Not Resolved]
  - Drug interaction [Not Recovered/Not Resolved]
  - Fat tissue increased [Not Recovered/Not Resolved]
  - Haemorrhage [Not Recovered/Not Resolved]
  - Hypertension [Not Recovered/Not Resolved]
  - Mental disorder [Not Recovered/Not Resolved]
  - Muscle atrophy [Not Recovered/Not Resolved]
  - Pancreatitis [Not Recovered/Not Resolved]
  - Skin discolouration [Not Recovered/Not Resolved]
